FAERS Safety Report 20681721 (Version 14)
Quarter: 2023Q4

REPORT INFORMATION
  Report Type: Spontaneous
  Country: CA (occurrence: CA)
  Receive Date: 20220406
  Receipt Date: 20231130
  Transmission Date: 20240109
  Serious: Yes (Hospitalization, Other)
  Sender: FDA-Public Use
  Company Number: CA-CELLTRION INC.-2022CA001049

PATIENT

DRUGS (21)
  1. INFLECTRA [Suspect]
     Active Substance: INFLIXIMAB-DYYB
     Indication: Crohn^s disease
     Dosage: 500 MG EVERY 6 WEEK
     Route: 042
     Dates: start: 20200219, end: 20220209
  2. INFLECTRA [Suspect]
     Active Substance: INFLIXIMAB-DYYB
     Dosage: 500 MG EVERY 6 WEEK
     Route: 042
     Dates: start: 20220101
  3. INFLECTRA [Suspect]
     Active Substance: INFLIXIMAB-DYYB
     Dosage: 500 MG, Q 0, 2, 6 WEEKS THEN EVERY 4 WEEKS
     Route: 042
     Dates: start: 20220322
  4. INFLECTRA [Suspect]
     Active Substance: INFLIXIMAB-DYYB
     Dosage: 500 MG, Q 0, 2, 6 WEEKS THEN EVERY 4 WEEKS
     Route: 042
     Dates: start: 20220417
  5. INFLECTRA [Suspect]
     Active Substance: INFLIXIMAB-DYYB
     Dosage: 500 MG, Q 0, 2, 6 WEEKS THEN EVERY 4 WEEKS
     Route: 042
     Dates: start: 20220515
  6. INFLECTRA [Suspect]
     Active Substance: INFLIXIMAB-DYYB
     Dosage: 500 MG, Q 0, 2, 6 WEEKS THEN EVERY 4 WEEKS
     Route: 042
     Dates: start: 20220814
  7. INFLECTRA [Suspect]
     Active Substance: INFLIXIMAB-DYYB
     Dosage: 500 MG, Q 0, 2, 6 WEEKS THEN EVERY 4 WEEKS
     Route: 042
     Dates: start: 20220925
  8. INFLECTRA [Suspect]
     Active Substance: INFLIXIMAB-DYYB
     Dosage: 500 MG, Q 0, 2, 6 WEEKS THEN EVERY 4 WEEKS
     Route: 042
     Dates: start: 20230221
  9. INFLECTRA [Suspect]
     Active Substance: INFLIXIMAB-DYYB
     Dosage: 500 MG, Q 0, 2, 6 WEEKS THEN EVERY 4 WEEKS
     Route: 042
     Dates: start: 20230221
  10. INFLECTRA [Suspect]
     Active Substance: INFLIXIMAB-DYYB
     Dosage: 500 MG, EVERY 4 WEEKS
     Route: 042
     Dates: start: 20230419
  11. INFLECTRA [Suspect]
     Active Substance: INFLIXIMAB-DYYB
     Dosage: 500 MG, Q 0, 2, 6 WEEKS THEN EVERY 4 WEEKS
     Route: 042
     Dates: start: 20231008
  12. INFLECTRA [Suspect]
     Active Substance: INFLIXIMAB-DYYB
     Dosage: 500 MG, Q 0, 2, 6 WEEKS THEN EVERY 4 WEEKS (500MG, 6 WEEKS)
     Route: 042
     Dates: start: 20231119
  13. ACETAMINOPHEN [Concomitant]
     Active Substance: ACETAMINOPHEN
     Indication: Premedication
     Dosage: 650 MG
     Dates: start: 20220101
  14. ACETAMINOPHEN [Concomitant]
     Active Substance: ACETAMINOPHEN
     Dosage: 650 MG
     Dates: start: 20220417, end: 20220417
  15. ACETAMINOPHEN [Concomitant]
     Active Substance: ACETAMINOPHEN
     Dosage: 650 MG
     Dates: start: 20230221, end: 20230221
  16. DIPHENHYDRAMINE [Concomitant]
     Active Substance: DIPHENHYDRAMINE
     Indication: Premedication
     Dosage: 50 MG
     Dates: start: 20220101
  17. DIPHENHYDRAMINE [Concomitant]
     Active Substance: DIPHENHYDRAMINE
     Dosage: 50 MG
     Dates: start: 20220417, end: 20220417
  18. DIPHENHYDRAMINE [Concomitant]
     Active Substance: DIPHENHYDRAMINE
     Dosage: 50 MG
     Dates: start: 20230221, end: 20230221
  19. HYDROCORTISONE [Concomitant]
     Active Substance: HYDROCORTISONE
     Indication: Premedication
     Dosage: 100 MG
     Dates: start: 20220101
  20. HYDROCORTISONE [Concomitant]
     Active Substance: HYDROCORTISONE
     Dosage: 100 MG
     Dates: start: 20220417, end: 20220417
  21. HYDROCORTISONE [Concomitant]
     Active Substance: HYDROCORTISONE
     Dosage: 100 MG
     Dates: start: 20230221, end: 20230221

REACTIONS (21)
  - Small intestinal obstruction [Unknown]
  - Pyoderma gangrenosum [Unknown]
  - Uveitis [Unknown]
  - Therapeutic response shortened [Unknown]
  - Condition aggravated [Recovered/Resolved]
  - Blood pressure increased [Not Recovered/Not Resolved]
  - Blood pressure fluctuation [Unknown]
  - Erythema nodosum [Unknown]
  - Arthralgia [Unknown]
  - Aphthous ulcer [Unknown]
  - Anal fissure [Recovered/Resolved]
  - Abscess [Recovered/Resolved]
  - Infection [Not Recovered/Not Resolved]
  - Impaired quality of life [Unknown]
  - Body temperature decreased [Unknown]
  - Drug intolerance [Not Recovered/Not Resolved]
  - Off label use [Unknown]
  - Off label use [Unknown]
  - Inappropriate schedule of product administration [Unknown]
  - Off label use [Unknown]
  - Intentional product use issue [Unknown]

NARRATIVE: CASE EVENT DATE: 20220101
